FAERS Safety Report 6134118-2 (Version None)
Quarter: 2009Q1

REPORT INFORMATION
  Report Type: 
  Country: None (occurrence: None)
  Receive Date: 20090326
  Receipt Date: 20090323
  Transmission Date: 20090719
  Serious: Yes (Life-Threatening, Other)
  Sender: FDA-Public Use
  Company Number: US-GILEAD-2009-0021037

PATIENT
  Age: 62 Year
  Sex: Female

DRUGS (1)
  1. VIREAD [Suspect]

REACTIONS (3)
  - AMMONIA INCREASED [None]
  - BLOOD CREATININE INCREASED [None]
  - COMA [None]
